FAERS Safety Report 21955993 (Version 3)
Quarter: 2023Q1

REPORT INFORMATION
  Report Type: Report from Study
  Country: AU (occurrence: None)
  Receive Date: 20230206
  Receipt Date: 20230302
  Transmission Date: 20230418
  Serious: Yes (Other)
  Sender: FDA-Public Use
  Company Number: AU-ROCHE-3274752

PATIENT
  Age: 68 Year
  Sex: Male
  Weight: 72 kg

DRUGS (23)
  1. RANIBIZUMAB [Suspect]
     Active Substance: RANIBIZUMAB
     Indication: Neovascular age-related macular degeneration
     Dosage: DATE OF FIRST DOSE OF STUDY DRUG 27/JAN/2023, DOSE OF STUDY DRUG FIRST ADMINISTERED 100 MG/ML,?DOSE
     Route: 050
  2. RANIBIZUMAB [Suspect]
     Active Substance: RANIBIZUMAB
  3. RANIBIZUMAB [Suspect]
     Active Substance: RANIBIZUMAB
  4. RANIBIZUMAB [Suspect]
     Active Substance: RANIBIZUMAB
  5. RANIBIZUMAB [Suspect]
     Active Substance: RANIBIZUMAB
  6. RANIBIZUMAB [Concomitant]
     Active Substance: RANIBIZUMAB
     Dosage: DOSE LAST STUDY DRUG ADMIN PRIOR AE AND SAE 10 MG/ML
     Route: 050
     Dates: start: 20221110
  7. CANNABIS SATIVA SEED OIL\HERBALS [Concomitant]
     Active Substance: CANNABIS SATIVA SEED OIL\HERBALS
     Dates: start: 2021
  8. ATORVASTATIN [Concomitant]
     Active Substance: ATORVASTATIN
     Indication: Cerebrovascular accident prophylaxis
     Dates: start: 20200415
  9. ASPIRIN [Concomitant]
     Active Substance: ASPIRIN
     Dates: start: 20211213
  10. CANDESARTAN [Concomitant]
     Active Substance: CANDESARTAN
     Indication: Hypertension
     Dates: start: 20220527
  11. CANDESARTAN [Concomitant]
     Active Substance: CANDESARTAN
     Dates: start: 20141201, end: 20220526
  12. VIAGRA [Concomitant]
     Active Substance: SILDENAFIL CITRATE
  13. CHLORAMPHENICOL [Concomitant]
     Active Substance: CHLORAMPHENICOL
     Dates: start: 20220510, end: 20220515
  14. CHLORAMPHENICOL [Concomitant]
     Active Substance: CHLORAMPHENICOL
     Dates: start: 20220503, end: 20220507
  15. CHLORAMPHENICOL [Concomitant]
     Active Substance: CHLORAMPHENICOL
     Dates: start: 20210825, end: 20210826
  16. CHLORAMPHENICOL [Concomitant]
     Active Substance: CHLORAMPHENICOL
     Dates: start: 20210827, end: 20210909
  17. MAXIDEX [Concomitant]
     Active Substance: DEXAMETHASONE
     Dosage: GIVEN FOR PROPHYLAXIS
     Route: 047
     Dates: start: 20210826, end: 20211011
  18. CEPHALEXIN [Concomitant]
     Active Substance: CEPHALEXIN
     Route: 048
     Dates: start: 20210816, end: 20210825
  19. ATROPINE SULFATE [Concomitant]
     Active Substance: ATROPINE SULFATE
     Route: 047
     Dates: start: 20210902, end: 20210909
  20. CLOPIDOGREL [Concomitant]
     Active Substance: CLOPIDOGREL BISULFATE
     Dates: start: 20210827, end: 20220411
  21. CLOPIDOGREL [Concomitant]
     Active Substance: CLOPIDOGREL BISULFATE
     Dates: start: 20200415, end: 20210819
  22. NAPROSYN [Concomitant]
     Active Substance: NAPROXEN
     Indication: Musculoskeletal stiffness
     Dates: start: 20220729, end: 20220827
  23. NAPROSYN [Concomitant]
     Active Substance: NAPROXEN
     Dates: start: 20220912, end: 202209

REACTIONS (2)
  - Retinal haemorrhage [Recovering/Resolving]
  - Conjunctival bleb [Recovered/Resolved]

NARRATIVE: CASE EVENT DATE: 20210909
